FAERS Safety Report 8492116-8 (Version None)
Quarter: 2012Q2

REPORT INFORMATION
  Report Type: 
  Country: None (occurrence: None)
  Receive Date: 20120627
  Receipt Date: 20120614
  Transmission Date: 20120825
  Serious: Yes (Hospitalization)
  Sender: FDA-Public Use
  Company Number: DSU-2012-04864

PATIENT
  Age: 69 Year
  Sex: Female
  Weight: 58.0604 kg

DRUGS (2)
  1. STATIN (INGREDIENTS UNSPECIFIED) (HMG COA REDUCTASE INHIBITORS) [Concomitant]
  2. BENICAR [Suspect]
     Indication: HYPERTENSION
     Dosage: PER ORAL
     Route: 048
     Dates: end: 20120501

REACTIONS (4)
  - BLOOD PRESSURE DECREASED [None]
  - STEATORRHOEA [None]
  - INTESTINAL VILLI ATROPHY [None]
  - DIARRHOEA [None]
